FAERS Safety Report 21173321 (Version 2)
Quarter: 2022Q3

REPORT INFORMATION
  Report Type: Spontaneous
  Country: US (occurrence: US)
  Receive Date: 20220804
  Receipt Date: 20220820
  Transmission Date: 20221027
  Serious: Yes (Life-Threatening, Hospitalization)
  Sender: FDA-Public Use
  Company Number: US-TEVA-2022-US-2060098

PATIENT
  Age: 35 Year
  Sex: Male
  Weight: 105 kg

DRUGS (16)
  1. EPOPROSTENOL [Suspect]
     Active Substance: EPOPROSTENOL
     Indication: Pulmonary arterial hypertension
     Route: 042
  2. EPOPROSTENOL [Suspect]
     Active Substance: EPOPROSTENOL
     Dosage: 10 NG/KG/MIN
     Route: 042
  3. EPOPROSTENOL [Suspect]
     Active Substance: EPOPROSTENOL
     Dosage: GRADUALLY INCREASED BACK TO 30 NG/KG/MIN
     Route: 042
  4. FENTANYL [Suspect]
     Active Substance: FENTANYL
     Indication: General anaesthesia
     Dosage: 100 MCG
     Route: 065
  5. NOREPINEPHRINE [Suspect]
     Active Substance: NOREPINEPHRINE
     Indication: Hypotension
     Route: 050
  6. PROPOFOL [Suspect]
     Active Substance: PROPOFOL
     Indication: General anaesthesia
     Dosage: 50 MG
     Route: 065
  7. ROCURONIUM [Suspect]
     Active Substance: ROCURONIUM BROMIDE
     Indication: General anaesthesia
     Dosage: 100 MG
     Route: 065
  8. MIDAZOLAM [Suspect]
     Active Substance: MIDAZOLAM
     Indication: General anaesthesia
     Dosage: 2 MG
     Route: 065
  9. VASOPRESSIN [Suspect]
     Active Substance: VASOPRESSIN
     Indication: Hypotension
     Dosage: 0.04 UNITS/MIN
     Route: 065
  10. VASOPRESSIN [Suspect]
     Active Substance: VASOPRESSIN
     Route: 041
  11. VASOPRESSIN [Suspect]
     Active Substance: VASOPRESSIN
     Dosage: BOLUSES
     Route: 065
  12. PHENYLEPHRINE [Suspect]
     Active Substance: PHENYLEPHRINE HYDROCHLORIDE
     Indication: Hypotension
     Dosage: BOLUSES
     Route: 065
  13. SILDENAFIL [Concomitant]
     Active Substance: SILDENAFIL
     Indication: Pulmonary arterial hypertension
     Route: 065
  14. AMBRISENTAN [Concomitant]
     Active Substance: AMBRISENTAN
     Indication: Pulmonary arterial hypertension
     Route: 065
  15. EPINEPHRINE [Concomitant]
     Active Substance: EPINEPHRINE
     Indication: Product used for unknown indication
     Dosage: 0.04 UG/KG/MIN
     Route: 050
  16. EPINEPHRINE [Concomitant]
     Active Substance: EPINEPHRINE
     Dosage: BOLUSES
     Route: 065

REACTIONS (4)
  - Hypotension [Recovering/Resolving]
  - Hypoxia [Recovered/Resolved]
  - Hypotension [Recovering/Resolving]
  - Drug ineffective [Unknown]
